FAERS Safety Report 8766727 (Version 2)
Quarter: 2012Q4

REPORT INFORMATION
  Report Type: 
  Country: GB (occurrence: GB)
  Receive Date: 20120904
  Receipt Date: 20120918
  Transmission Date: 20130627
  Serious: Yes (Disabling)
  Sender: FDA-Public Use
  Company Number: GB-SANOFI-AVENTIS-2012SA060960

PATIENT
  Age: 33 Year
  Sex: Female

DRUGS (5)
  1. ARAVA [Suspect]
     Indication: RHEUMATOID ARTHRITIS
     Route: 048
     Dates: start: 201201
  2. DICLOFENAC [Concomitant]
     Indication: INFLAMMATION
     Dosage: dose: 50-100 mg daily
  3. LAXATIVES [Concomitant]
  4. PARACETAMOL [Concomitant]
     Indication: PAIN
     Route: 048
  5. PREDNISOLONE [Concomitant]
     Indication: IMMUNE STATUS
     Route: 048
     Dates: start: 201110

REACTIONS (6)
  - Dental caries [Not Recovered/Not Resolved]
  - Gingival discolouration [Not Recovered/Not Resolved]
  - Tooth loss [Not Recovered/Not Resolved]
  - Tooth fracture [Not Recovered/Not Resolved]
  - Tooth disorder [Not Recovered/Not Resolved]
  - Mouth ulceration [Not Recovered/Not Resolved]
